FAERS Safety Report 5837103-0 (Version None)
Quarter: 2008Q3

REPORT INFORMATION
  Report Type: 
  Country: None (occurrence: None)
  Receive Date: 20080807
  Receipt Date: 20080728
  Transmission Date: 20090109
  Serious: Yes (Hospitalization)
  Sender: FDA-Public Use
  Company Number: US-MERCK-0806USA07726

PATIENT
  Age: 9 Year
  Sex: Female
  Weight: 27 kg

DRUGS (6)
  1. SINGULAIR [Suspect]
     Indication: ASTHMA
     Route: 048
     Dates: start: 20020801, end: 20030801
  2. SINGULAIR [Suspect]
     Route: 048
     Dates: start: 20030925, end: 20060101
  3. SINGULAIR [Suspect]
     Indication: RHINITIS ALLERGIC
     Route: 048
     Dates: start: 20020801, end: 20030801
  4. SINGULAIR [Suspect]
     Route: 048
     Dates: start: 20030925, end: 20060101
  5. PULMICORT-100 [Concomitant]
     Route: 065
  6. ALBUTEROL [Concomitant]
     Indication: WHEEZING
     Route: 065

REACTIONS (2)
  - DEPRESSION [None]
  - SUICIDAL IDEATION [None]
